FAERS Safety Report 20698355 (Version 1)
Quarter: 2022Q2

REPORT INFORMATION
  Report Type: Spontaneous
  Country: ES (occurrence: ES)
  Receive Date: 20220412
  Receipt Date: 20220412
  Transmission Date: 20220721
  Serious: Yes (Other)
  Sender: FDA-Public Use
  Company Number: ES-SUN PHARMACEUTICAL INDUSTRIES LTD-2022R1-332268

PATIENT
  Age: 42 Year
  Sex: Female

DRUGS (1)
  1. TOPIRAMATE [Suspect]
     Active Substance: TOPIRAMATE
     Indication: Weight decreased
     Dosage: 100 MG
     Route: 065

REACTIONS (4)
  - Idiosyncratic drug reaction [Unknown]
  - Choroidal detachment [Unknown]
  - Angle closure glaucoma [Unknown]
  - Off label use [Unknown]
